FAERS Safety Report 5212927-1 (Version None)
Quarter: 2007Q1

REPORT INFORMATION
  Report Type: 
  Country: None (occurrence: None)
  Receive Date: 20070117
  Receipt Date: 20070117
  Transmission Date: 20070707
  Serious: Yes (Disabling)
  Sender: FDA-Public Use
  Company Number: None

PATIENT
  Age: 52 Year
  Sex: Male
  Weight: 88.6 kg

DRUGS (1)
  1. CYPHER SIROLIMUS - ELUTING CORONARY STENT ON RPID [Suspect]

REACTIONS (3)
  - CORONARY ARTERY OCCLUSION [None]
  - DEVICE DISLOCATION [None]
  - PROCEDURAL COMPLICATION [None]
